FAERS Safety Report 7227407-1 (Version None)
Quarter: 2011Q1

REPORT INFORMATION
  Report Type: 
  Country: None (occurrence: None)
  Receive Date: 20110105
  Receipt Date: 20101221
  Transmission Date: 20110831
  Serious: Yes (Other)
  Sender: FDA-Public Use
  Company Number: 2010-4365

PATIENT
  Age: 18 Year
  Sex: Female

DRUGS (1)
  1. INCRELEX [Suspect]
     Indication: INSULIN RESISTANCE SYNDROME
     Dosage: 0.1 MG/KG (0.1 MG/KG, 1 IN 1 D, 0.2 MG/KG (0.2 MG/KG, 1 IN 1 D)

REACTIONS (2)
  - RETINOPATHY PROLIFERATIVE [None]
  - DIABETES MELLITUS INADEQUATE CONTROL [None]
